FAERS Safety Report 23724882 (Version 2)
Quarter: 2024Q2

REPORT INFORMATION
  Report Type: Report from Study
  Country: US (occurrence: US)
  Receive Date: 20240410
  Receipt Date: 20240411
  Transmission Date: 20240716
  Serious: Yes (Hospitalization)
  Sender: FDA-Public Use
  Company Number: US-ABBVIE-5710598

PATIENT
  Sex: Female

DRUGS (1)
  1. IMBRUVICA [Suspect]
     Active Substance: IBRUTINIB
     Indication: B-cell lymphoma
     Route: 048
     Dates: start: 202308, end: 202404

REACTIONS (5)
  - Hypotension [Unknown]
  - Urinary tract infection [Unknown]
  - Dehydration [Unknown]
  - Chills [Unknown]
  - Dysuria [Unknown]

NARRATIVE: CASE EVENT DATE: 20240101
